FAERS Safety Report 6531072-6 (Version None)
Quarter: 2010Q1

REPORT INFORMATION
  Report Type: 
  Country: None (occurrence: None)
  Receive Date: 20100108
  Receipt Date: 20091208
  Transmission Date: 20100710
  Serious: No
  Sender: FDA-Public Use
  Company Number: A0816660A

PATIENT
  Age: 56 Year
  Sex: Male
  Weight: 109.1 kg

DRUGS (1)
  1. LOVAZA [Suspect]
     Indication: DRUG USE FOR UNKNOWN INDICATION
     Dosage: 4G PER DAY
     Route: 048
     Dates: start: 20091019, end: 20091104

REACTIONS (1)
  - MEDICATION RESIDUE [None]
